FAERS Safety Report 12453087 (Version 1)
Quarter: 2016Q2

REPORT INFORMATION
  Report Type: Spontaneous
  Country: US (occurrence: US)
  Receive Date: 20160609
  Receipt Date: 20160609
  Transmission Date: 20160815
  Serious: Yes (Other)
  Sender: FDA-Public Use
  Company Number: US-CELGENEUS-USA-2016056779

PATIENT

DRUGS (4)
  1. VIDAZA [Suspect]
     Active Substance: AZACITIDINE
     Indication: MYELODYSPLASTIC SYNDROME
     Dosage: 75 MILLIGRAM/SQ. METER
     Route: 065
  2. VIDAZA [Suspect]
     Active Substance: AZACITIDINE
     Indication: CHRONIC MYELOMONOCYTIC LEUKAEMIA
  3. GLASDEGIB [Suspect]
     Active Substance: GLASDEGIB
     Indication: MYELODYSPLASTIC SYNDROME
     Route: 065
  4. GLASDEGIB [Suspect]
     Active Substance: GLASDEGIB
     Indication: CHRONIC MYELOMONOCYTIC LEUKAEMIA

REACTIONS (33)
  - Urinary tract infection [Unknown]
  - Tachycardia [Unknown]
  - Hypotension [Unknown]
  - Dysgeusia [Unknown]
  - Pyrexia [Unknown]
  - Neutropenic sepsis [Unknown]
  - Hypokalaemia [Unknown]
  - Procedural hypotension [Unknown]
  - Pneumonia [Unknown]
  - Hyponatraemia [Unknown]
  - Hypophosphataemia [Unknown]
  - Bacteraemia [Unknown]
  - Febrile neutropenia [Unknown]
  - Hypoxia [Unknown]
  - Diverticulitis [Unknown]
  - Respiratory tract infection [Unknown]
  - Mental status changes [Unknown]
  - Nausea [Unknown]
  - Musculoskeletal chest pain [Unknown]
  - Anaemia [Unknown]
  - Dyspnoea [Unknown]
  - Ischaemic hepatitis [Unknown]
  - Respiratory distress [Unknown]
  - Electrocardiogram QT prolonged [Unknown]
  - Constipation [Unknown]
  - Haemarthrosis [Unknown]
  - Acute kidney injury [Unknown]
  - Sepsis [Unknown]
  - Fatigue [Unknown]
  - Osteomyelitis [Unknown]
  - Muscle spasms [Unknown]
  - Acute respiratory distress syndrome [Unknown]
  - Neutropenia [Unknown]
